FAERS Safety Report 12073658 (Version 3)
Quarter: 2016Q1

REPORT INFORMATION
  Report Type: Spontaneous
  Country: CH (occurrence: CH)
  Receive Date: 20160212
  Receipt Date: 20160317
  Transmission Date: 20160526
  Serious: Yes (Hospitalization)
  Sender: FDA-Public Use
  Company Number: CH-PFIZER INC-2016079918

PATIENT
  Age: 48 Year
  Sex: Male

DRUGS (5)
  1. SURMONTIL [Suspect]
     Active Substance: TRIMIPRAMINE MALEATE
     Dosage: 25 MG, 3X/DAY
     Route: 048
  2. DAOSIN [Concomitant]
     Dosage: 2 X 1 TABLET
     Route: 048
  3. DAFALGAN [Concomitant]
     Active Substance: ACETAMINOPHEN
     Dosage: 3X 1 G
     Route: 048
  4. EFFEXOR XR [Suspect]
     Active Substance: VENLAFAXINE HYDROCHLORIDE
     Indication: DEPRESSION
     Dosage: 37.5 MG, UNK
     Route: 048
     Dates: start: 20151218, end: 20151218
  5. ZOMIG [Suspect]
     Active Substance: ZOLMITRIPTAN
     Dosage: 2X 2.5 MG
     Route: 048

REACTIONS (4)
  - Asthenia [Recovered/Resolved]
  - Feeling hot [Recovered/Resolved]
  - Rectal tenesmus [Recovered/Resolved]
  - Syncope [Recovered/Resolved]

NARRATIVE: CASE EVENT DATE: 20151219
